FAERS Safety Report 24400621 (Version 2)
Quarter: 2024Q4

REPORT INFORMATION
  Report Type: Spontaneous
  Country: US (occurrence: US)
  Receive Date: 20241006
  Receipt Date: 20241108
  Transmission Date: 20250115
  Serious: Yes (Other)
  Sender: DR REDDYS
  Company Number: US-DRL-USA-SPO/USA/24/0014132

PATIENT
  Age: 48 Year
  Sex: Female

DRUGS (10)
  1. CLOZAPINE [Suspect]
     Active Substance: CLOZAPINE
     Indication: Product used for unknown indication
     Route: 065
     Dates: start: 202208
  2. LEVOCETIRIZINE [Concomitant]
     Active Substance: LEVOCETIRIZINE
     Indication: Product used for unknown indication
     Route: 048
  3. ONDANSETRON [Concomitant]
     Active Substance: ONDANSETRON
     Indication: Product used for unknown indication
     Dosage: ONDANSETRON 4 MG DISINTEGRATING TABLET
     Route: 065
  4. EPINEPHRINE HYDROCHLORIDE [Concomitant]
     Active Substance: EPINEPHRINE HYDROCHLORIDE
     Indication: Product used for unknown indication
     Dosage: EPINEPHRINE HYDROCHLORIDE 0.3 MG/0.3 ML INJECTION, AUTO-INJETOR
     Route: 065
  5. LISINOPRIL [Concomitant]
     Active Substance: LISINOPRIL
     Indication: Product used for unknown indication
     Dosage: LISINOPRIL 20 MG TABLET, TAKE 1 TABLET BY ORAL ROUTE EVERY DAY
     Route: 048
  6. ALBUTEROL SULFATE [Concomitant]
     Active Substance: ALBUTEROL SULFATE
     Indication: Product used for unknown indication
     Dosage: ALBUTEROL SULFATE HFA 90 MCG/ACTUATION AEROSOL INHALER??(INHALE 2 PUFFS BY INHALATION ROUTE, EVERY 4
     Route: 055
  7. EPINEPHRINE HYDROCHLORIDE [Concomitant]
     Active Substance: EPINEPHRINE HYDROCHLORIDE
     Indication: Product used for unknown indication
     Dosage: EPINEPHRINE HYDROCHLORIDE (PF) INJECTION SOLUTION
     Route: 065
  8. CLOZARIL [Concomitant]
     Active Substance: CLOZAPINE
     Indication: Bipolar disorder
     Dosage: CLOZARIL 100 MG TABLET; TAKE 2 TABLETS BY MOUTH AT BED TIME FOR BIPOLAR DISORDER
     Route: 048
  9. VITAMIN D2 [Concomitant]
     Active Substance: ERGOCALCIFEROL
     Indication: Product used for unknown indication
     Dosage: VITAMIN D2, (50000 IU) (ERGOCALCIFEROL)
     Route: 048
  10. HYDROCHLOROTHIAZIDE [Concomitant]
     Active Substance: HYDROCHLOROTHIAZIDE
     Indication: Product used for unknown indication
     Dosage: HYDROCHLOROTHIAZIDE 25 MG TABLET
     Route: 048

REACTIONS (4)
  - Neutropenia [Unknown]
  - Depression [Unknown]
  - Affective disorder [Unknown]
  - Attention deficit hyperactivity disorder [Unknown]

NARRATIVE: CASE EVENT DATE: 20240911
